FAERS Safety Report 21147654 (Version 2)
Quarter: 2023Q1

REPORT INFORMATION
  Report Type: Other
  Country: FR (occurrence: FR)
  Receive Date: 20220729
  Receipt Date: 20230213
  Transmission Date: 20230417
  Serious: Yes (Death, Other)
  Sender: FDA-Public Use
  Company Number: None

PATIENT
  Age: 52 Year
  Sex: Male

DRUGS (3)
  1. AMPHOTERICIN B [Suspect]
     Active Substance: AMPHOTERICIN B
     Indication: Systemic candida
     Dosage: 3 MG/KG, UNKNOWN FREQ. (210 MG/DAY)
     Route: 065
     Dates: start: 20170414, end: 20170620
  2. CASPOFUNGIN [Suspect]
     Active Substance: CASPOFUNGIN
     Indication: Systemic candida
     Dosage: 3 MG/KG (70MG/DAY), UNKNOWN FREQ.
     Route: 065
     Dates: start: 20170620, end: 20170628
  3. CASPOFUNGIN [Suspect]
     Active Substance: CASPOFUNGIN
     Dosage: 3 MG/KG (50MG/DAY), UNKNOWN FREQ.
     Route: 065
     Dates: start: 20170620, end: 20170628

REACTIONS (2)
  - Systemic candida [Fatal]
  - Drug ineffective [Fatal]

NARRATIVE: CASE EVENT DATE: 20170621
